FAERS Safety Report 4501097-0 (Version None)
Quarter: 2004Q4

REPORT INFORMATION
  Report Type: 
  Country: None (occurrence: None)
  Receive Date: 20041109
  Receipt Date: 20041021
  Transmission Date: 20050328
  Serious: Yes (Hospitalization)
  Sender: FDA-Public Use
  Company Number: USA041082046

PATIENT
  Sex: Male

DRUGS (1)
  1. ZYPREXA [Suspect]
     Indication: MENTAL DISORDER
     Dosage: 10 MG/ 1 AT BEDTIME
     Dates: start: 20040201

REACTIONS (4)
  - COUGH [None]
  - MUSCLE TWITCHING [None]
  - PENIS DISORDER [None]
  - VISUAL DISTURBANCE [None]
